FAERS Safety Report 8962789 (Version 1)
Quarter: 2012Q4

REPORT INFORMATION
  Report Type: Report from Study
  Country: TH (occurrence: TH)
  Receive Date: 20121213
  Receipt Date: 20121213
  Transmission Date: 20130627
  Serious: Yes (Hospitalization)
  Sender: FDA-Public Use
  Company Number: TH-JNJFOC-20120900538

PATIENT
  Age: 28 Year
  Sex: Male

DRUGS (2)
  1. RISPERDAL CONSTA [Suspect]
     Indication: SCHIZOPHRENIA
     Route: 030
     Dates: start: 20030815, end: 20030829
  2. RISPERDAL CONSTA [Suspect]
     Indication: SCHIZOPHRENIA
     Dosage: visit-3
     Route: 030
     Dates: start: 20030829

REACTIONS (2)
  - Schizophrenia [Recovered/Resolved with Sequelae]
  - Aggression [Recovered/Resolved with Sequelae]
